FAERS Safety Report 4833152-X (Version None)
Quarter: 2005Q4

REPORT INFORMATION
  Report Type: 
  Country: None (occurrence: None)
  Receive Date: 20051117
  Receipt Date: 20051104
  Transmission Date: 20060501
  Serious: Yes (Other)
  Sender: FDA-Public Use
  Company Number: 2005141961

PATIENT
  Age: 23 Year
  Sex: Male

DRUGS (3)
  1. TESTOSTERONE CIPIONATE SOLUTION, STERILE (TESTOSTERONE CIPIONATE) [Suspect]
     Indication: OFF LABEL USE
     Dosage: (800 MG, WEEKLY)
  2. ANADROL [Suspect]
     Indication: OFF LABEL USE
     Dosage: 250 MG (250 MG, 1 IN 1 D), ORAL
     Route: 048
  3. METHANDROSTENOLONE [Suspect]
     Indication: OFF LABEL USE
     Dosage: 30 MG (30 MG, 1 IN 1 D)

REACTIONS (12)
  - ABNORMAL BEHAVIOUR [None]
  - AGGRESSION [None]
  - DELUSION OF GRANDEUR [None]
  - HOMICIDE [None]
  - IMPRISONMENT [None]
  - IMPULSIVE BEHAVIOUR [None]
  - IRRITABILITY [None]
  - MANIA [None]
  - MOOD ALTERED [None]
  - MOOD DISORDER DUE TO A GENERAL MEDICAL CONDITION [None]
  - PHYSICAL ASSAULT [None]
  - ROAD TRAFFIC ACCIDENT [None]
